FAERS Safety Report 14033386 (Version 1)
Quarter: 2017Q4

REPORT INFORMATION
  Report Type: Spontaneous
  Country: US (occurrence: US)
  Receive Date: 20171002
  Receipt Date: 20171002
  Transmission Date: 20180321
  Serious: No
  Sender: FDA-Public Use
  Company Number: US-JAZZ-2017-US-010091

PATIENT
  Sex: Female

DRUGS (16)
  1. XYREM [Suspect]
     Active Substance: SODIUM OXYBATE
     Dosage: 3G, BID
     Route: 048
     Dates: start: 201701, end: 201703
  2. CYMBALTA [Concomitant]
     Active Substance: DULOXETINE HYDROCHLORIDE
  3. MUCINEX [Concomitant]
     Active Substance: GUAIFENESIN
  4. VENTOLIN HFA [Concomitant]
     Active Substance: ALBUTEROL SULFATE
  5. XYREM [Suspect]
     Active Substance: SODIUM OXYBATE
     Indication: NARCOLEPSY
     Dosage: 2.25G, BID
     Route: 048
     Dates: start: 201506, end: 201506
  6. PROVIGIL [Suspect]
     Active Substance: MODAFINIL
     Indication: PRODUCT USED FOR UNKNOWN INDICATION
  7. SINGULAIR [Concomitant]
     Active Substance: MONTELUKAST SODIUM
  8. NUVIGIL [Concomitant]
     Active Substance: ARMODAFINIL
  9. BENTYL [Concomitant]
     Active Substance: DICYCLOMINE HYDROCHLORIDE
  10. ALLEGRA [Concomitant]
     Active Substance: FEXOFENADINE HYDROCHLORIDE
  11. LEVOCETIRIZINE [Concomitant]
     Active Substance: LEVOCETIRIZINE
  12. XYREM [Suspect]
     Active Substance: SODIUM OXYBATE
     Dosage: 3.75G, BID
     Route: 048
     Dates: start: 201506, end: 201511
  13. FLONASE [Concomitant]
     Active Substance: FLUTICASONE PROPIONATE
  14. CLONAZEPAM. [Concomitant]
     Active Substance: CLONAZEPAM
  15. XYREM [Suspect]
     Active Substance: SODIUM OXYBATE
     Dosage: 3G, BID
     Route: 048
     Dates: start: 201703
  16. SYMBICORT [Concomitant]
     Active Substance: BUDESONIDE\FORMOTEROL FUMARATE DIHYDRATE

REACTIONS (5)
  - Initial insomnia [Unknown]
  - Fatigue [Not Recovered/Not Resolved]
  - Feeling jittery [Unknown]
  - Feeling abnormal [Unknown]
  - Hypersensitivity [Recovering/Resolving]
